FAERS Safety Report 9842831 (Version 2)
Quarter: 2014Q1

REPORT INFORMATION
  Report Type: Spontaneous
  Country: DE (occurrence: GB)
  Receive Date: 20140124
  Receipt Date: 20140219
  Transmission Date: 20141002
  Serious: Yes (Other)
  Sender: FDA-Public Use
  Company Number: GB-FRI-1000053041

PATIENT
  Age: 66 Year
  Sex: Male

DRUGS (4)
  1. MEMANTINE [Suspect]
     Indication: DEMENTIA ALZHEIMER^S TYPE
     Dosage: TITRATED UP TO 15 MG DAILY
     Route: 048
     Dates: start: 201312, end: 20140112
  2. MEMANTINE [Suspect]
     Indication: DEMENTIA ALZHEIMER^S TYPE
     Dosage: 10 MG
     Route: 048
  3. MEMANTINE [Suspect]
     Dosage: 15 MG
     Route: 048
  4. MEMANTINE [Suspect]
     Dosage: 20 MG
     Route: 048

REACTIONS (1)
  - Lower respiratory tract infection [Recovered/Resolved]
